FAERS Safety Report 6368945-3 (Version None)
Quarter: 2009Q3

REPORT INFORMATION
  Report Type: 
  Country: None (occurrence: None)
  Receive Date: 20090922
  Receipt Date: 20090909
  Transmission Date: 20100115
  Serious: Yes (Hospitalization, Other)
  Sender: FDA-Public Use
  Company Number: US-PFIZER INC-2009255025

PATIENT
  Sex: Male

DRUGS (1)
  1. CHANTIX [Suspect]

REACTIONS (12)
  - BLOOD ELECTROLYTES ABNORMAL [None]
  - BLOOD PRESSURE INCREASED [None]
  - GENERALISED ANXIETY DISORDER [None]
  - HIP ARTHROPLASTY [None]
  - HYPOACUSIS [None]
  - INCREASED TENDENCY TO BRUISE [None]
  - MUSCLE SPASMS [None]
  - PALPITATIONS [None]
  - PANIC DISORDER [None]
  - POST-TRAUMATIC STRESS DISORDER [None]
  - PSORIASIS [None]
  - WITHDRAWAL SYNDROME [None]
